FAERS Safety Report 11060117 (Version 5)
Quarter: 2016Q2

REPORT INFORMATION
  Report Type: Spontaneous
  Country: US (occurrence: US)
  Receive Date: 20150423
  Receipt Date: 20160602
  Transmission Date: 20160815
  Serious: No
  Sender: FDA-Public Use
  Company Number: US-ASTRAZENECA-2015SE35703

PATIENT
  Sex: Male
  Weight: 99.8 kg

DRUGS (10)
  1. MOTRIN [Concomitant]
     Active Substance: IBUPROFEN
  2. LANTUS [Concomitant]
     Active Substance: INSULIN GLARGINE
     Indication: TYPE 2 DIABETES MELLITUS
     Dosage: DECREASED DOSE
  3. LYRICA [Concomitant]
     Active Substance: PREGABALIN
  4. SEROQUEL [Concomitant]
     Active Substance: QUETIAPINE FUMARATE
  5. ROPINIROLE. [Concomitant]
     Active Substance: ROPINIROLE
     Indication: RESTLESS LEGS SYNDROME
  6. INVOKANA [Concomitant]
     Active Substance: CANAGLIFLOZIN
  7. ALEVE [Concomitant]
     Active Substance: NAPROXEN SODIUM
  8. BYDUREON [Suspect]
     Active Substance: EXENATIDE
     Indication: TYPE 2 DIABETES MELLITUS
     Route: 058
  9. LANTUS [Concomitant]
     Active Substance: INSULIN GLARGINE
     Indication: TYPE 2 DIABETES MELLITUS
     Dosage: 56 UNITS, TWICE DAILY
  10. TAMSULOSIN [Concomitant]
     Active Substance: TAMSULOSIN
     Indication: PROSTATIC DISORDER

REACTIONS (6)
  - Needle issue [Unknown]
  - Incorrect dose administered [Unknown]
  - Drug dose omission [Unknown]
  - Injection site pain [Unknown]
  - Intentional device misuse [Unknown]
  - Injection site reaction [Unknown]
